FAERS Safety Report 15830027 (Version 1)
Quarter: 2019Q1

REPORT INFORMATION
  Report Type: Spontaneous
  Country: US (occurrence: US)
  Receive Date: 20190115
  Receipt Date: 20190115
  Transmission Date: 20190417
  Serious: No
  Sender: FDA-Public Use
  Company Number: US-ALLERGAN-1840878US

PATIENT
  Sex: Female
  Weight: 72.56 kg

DRUGS (3)
  1. RESTASIS [Suspect]
     Active Substance: CYCLOSPORINE
     Indication: EYE DISCHARGE
     Dosage: 2 GTT, BID
     Route: 047
     Dates: end: 20180819
  2. RESTASIS [Suspect]
     Active Substance: CYCLOSPORINE
     Indication: EYE INFECTION
  3. RESTASIS [Suspect]
     Active Substance: CYCLOSPORINE
     Indication: LACRIMATION DECREASED

REACTIONS (5)
  - Accidental exposure to product [Unknown]
  - Product container issue [Unknown]
  - Incorrect dose administered [Unknown]
  - Off label use [Unknown]
  - Drug ineffective for unapproved indication [Unknown]
